FAERS Safety Report 8082756-2 (Version None)
Quarter: 2012Q1

REPORT INFORMATION
  Report Type: 
  Country: None (occurrence: None)
  Receive Date: 20120127
  Receipt Date: 20110209
  Transmission Date: 20120608
  Serious: No
  Sender: FDA-Public Use
  Company Number: US-ABBOTT-11P-163-0703858-00

PATIENT
  Sex: Female
  Weight: 63.56 kg

DRUGS (5)
  1. SULFASALAZINE [Suspect]
     Indication: COLITIS ULCERATIVE
     Dates: start: 20070101
  2. HUMIRA [Suspect]
     Indication: PSORIATIC ARTHROPATHY
  3. METHOTREXATE [Concomitant]
     Indication: PSORIATIC ARTHROPATHY
     Dates: start: 20070101
  4. FOLIC ACID [Concomitant]
     Indication: PRODUCT USED FOR UNKNOWN INDICATION
  5. HUMIRA [Suspect]
     Indication: COLITIS ULCERATIVE
     Dates: start: 20100817, end: 20110101

REACTIONS (1)
  - DRUG INEFFECTIVE [None]
